FAERS Safety Report 12430462 (Version 1)
Quarter: 2016Q2

REPORT INFORMATION
  Report Type: Not Available
  Country: None (occurrence: US)
  Receive Date: 20160602
  Receipt Date: 20160602
  Transmission Date: 20160815
  Serious: No
  Sender: FDA-Public Use
  Company Number: US-AKORN-30376

PATIENT
  Sex: Female

DRUGS (1)
  1. PROGESTERONE CAPSULES 200MG [Suspect]
     Active Substance: PROGESTERONE

REACTIONS (3)
  - Irritability [Recovered/Resolved]
  - Headache [Recovered/Resolved]
  - Fatigue [Recovered/Resolved]
